FAERS Safety Report 7245182-1 (Version None)
Quarter: 2011Q1

REPORT INFORMATION
  Report Type: 
  Country: None (occurrence: None)
  Receive Date: 20110126
  Receipt Date: 20110114
  Transmission Date: 20110831
  Serious: Yes (Hospitalization)
  Sender: FDA-Public Use
  Company Number: PHHY2011DE03780

PATIENT

DRUGS (2)
  1. PROVAS [Suspect]
     Dosage: UNK
     Dates: start: 20100501
  2. PROVAS COMP [Suspect]
     Indication: HYPERTENSION
     Dosage: UNK
     Dates: start: 19900101, end: 20100501

REACTIONS (1)
  - ARRHYTHMIA [None]
